FAERS Safety Report 10812893 (Version 1)
Quarter: 2015Q1

REPORT INFORMATION
  Report Type: Report from Study
  Country: US (occurrence: US)
  Receive Date: 20150218
  Receipt Date: 20150218
  Transmission Date: 20150721
  Serious: No
  Sender: FDA-Public Use
  Company Number: US-ABBVIE-14K-163-1272159-00

PATIENT
  Sex: Female

DRUGS (5)
  1. ANTIBIOTICS [Suspect]
     Active Substance: UNSPECIFIED INGREDIENT
     Indication: BRONCHITIS
     Dates: start: 2014
  2. UNKNOWN ORAL BIRTH CONTROL [Concomitant]
     Indication: CONTRACEPTION
     Route: 048
  3. CELEXA [Concomitant]
     Active Substance: CITALOPRAM HYDROBROMIDE
     Indication: ANXIETY
  4. HUMIRA [Suspect]
     Active Substance: ADALIMUMAB
     Indication: CROHN^S DISEASE
     Dates: start: 20140525
  5. ANTIFUNGALS [Suspect]
     Active Substance: UNSPECIFIED INGREDIENT
     Indication: RASH PAPULAR
     Dates: start: 2014

REACTIONS (9)
  - Rash pruritic [Unknown]
  - Cough [Not Recovered/Not Resolved]
  - Bronchitis [Not Recovered/Not Resolved]
  - Rash papular [Recovered/Resolved]
  - Rash erythematous [Not Recovered/Not Resolved]
  - Drug ineffective [Unknown]
  - Atypical pneumonia [Unknown]
  - Rash [Unknown]
  - Tinea infection [Unknown]

NARRATIVE: CASE EVENT DATE: 2014
